FAERS Safety Report 6365368-8 (Version None)
Quarter: 2009Q3

REPORT INFORMATION
  Report Type: 
  Country: None (occurrence: None)
  Receive Date: 20090919
  Receipt Date: 20090811
  Transmission Date: 20100115
  Serious: No
  Sender: FDA-Public Use
  Company Number: US-ABBOTT-09P-163-0590977-00

PATIENT
  Sex: Female

DRUGS (2)
  1. HUMIRA [Suspect]
     Indication: PSORIASIS
     Route: 058
     Dates: start: 20090501
  2. ADVAIR HFA [Suspect]
     Indication: ASTHMA
     Dosage: UNKNOWN DOSE
     Route: 055

REACTIONS (1)
  - ORAL CANDIDIASIS [None]
